FAERS Safety Report 5170805-0 (Version None)
Quarter: 2006Q4

REPORT INFORMATION
  Report Type: 
  Country: None (occurrence: None)
  Receive Date: 20061205
  Receipt Date: 20061205
  Transmission Date: 20070319
  Serious: Yes (Other)
  Sender: FDA-Public Use
  Company Number: None

PATIENT
  Age: 21 Year
  Sex: Male
  Weight: 72.5755 kg

DRUGS (1)
  1. LEVAQUIN [Suspect]
     Indication: WOUND INFECTION BACTERIAL
     Dosage: 1 PILL DAILY PO
     Route: 048
     Dates: start: 20061111, end: 20061125

REACTIONS (1)
  - PRURITUS [None]
